FAERS Safety Report 9671301 (Version 1)
Quarter: 2013Q4

REPORT INFORMATION
  Report Type: Report from Study
  Country: CA (occurrence: CA)
  Receive Date: 20131106
  Receipt Date: 20131106
  Transmission Date: 20140711
  Serious: Yes (Hospitalization, Other)
  Sender: FDA-Public Use
  Company Number: CA-JNJFOC-20131019867

PATIENT
  Age: 80 Year
  Sex: Female
  Weight: 46 kg

DRUGS (9)
  1. REMICADE [Suspect]
     Indication: CROHN^S DISEASE
     Route: 042
     Dates: start: 201309
  2. SYNTHROID [Concomitant]
     Route: 065
  3. MAVIK [Concomitant]
     Route: 065
  4. METOPROLOL [Concomitant]
     Route: 065
  5. AMLODIPINE [Concomitant]
     Route: 065
  6. PANTOLOC [Concomitant]
     Route: 065
  7. HYDROXYZINE [Concomitant]
     Route: 065
  8. ANAGRELIDE [Concomitant]
     Route: 065
  9. ASPIRIN [Concomitant]
     Route: 065

REACTIONS (3)
  - Lower respiratory tract infection [Recovering/Resolving]
  - Arthralgia [Recovering/Resolving]
  - Back pain [Recovering/Resolving]
